FAERS Safety Report 14259424 (Version 1)
Quarter: 2017Q4

REPORT INFORMATION
  Report Type: Spontaneous
  Country: US (occurrence: US)
  Receive Date: 20171207
  Receipt Date: 20171207
  Transmission Date: 20180321
  Serious: No
  Sender: FDA-Public Use
  Company Number: US-GLAXOSMITHKLINE-US2017GSK186890

PATIENT
  Age: 60 Year
  Sex: Male

DRUGS (8)
  1. ASPIRIN. [Suspect]
     Active Substance: ASPIRIN
     Indication: PAIN
  2. METFORMIN [Concomitant]
     Active Substance: METFORMIN HYDROCHLORIDE
  3. TOUJEO [Concomitant]
     Active Substance: INSULIN GLARGINE
  4. CALCIUM UNKNOWN [Concomitant]
  5. VITAMIN D [Concomitant]
     Active Substance: CHOLECALCIFEROL
  6. TANZEUM [Suspect]
     Active Substance: ALBIGLUTIDE
     Indication: TYPE 2 DIABETES MELLITUS
     Dosage: 50 MG, WE
     Route: 058
     Dates: start: 2017
  7. GROWTH HORMONE [Concomitant]
     Active Substance: SOMATROPIN
  8. METOPROLOL. [Concomitant]
     Active Substance: METOPROLOL

REACTIONS (12)
  - Abdominal pain upper [Unknown]
  - Underdose [Unknown]
  - Limb discomfort [Unknown]
  - Device leakage [Unknown]
  - Pollakiuria [Recovering/Resolving]
  - Pain in extremity [Not Recovered/Not Resolved]
  - Intentional dose omission [Unknown]
  - Blood glucose decreased [Recovering/Resolving]
  - Wrong technique in device usage process [Unknown]
  - Injection site pain [Recovering/Resolving]
  - Pain [Recovering/Resolving]
  - Abdominal distension [Unknown]

NARRATIVE: CASE EVENT DATE: 201711
